FAERS Safety Report 8289528-4 (Version None)
Quarter: 2012Q2

REPORT INFORMATION
  Report Type: 
  Country: None (occurrence: None)
  Receive Date: 20120417
  Receipt Date: 20120412
  Transmission Date: 20120825
  Serious: Yes (Hospitalization)
  Sender: FDA-Public Use
  Company Number: FR-PFIZER INC-2012090887

PATIENT
  Age: 71 Year
  Sex: Female
  Weight: 49 kg

DRUGS (8)
  1. AMLODIPINE BESYLATE [Suspect]
     Dosage: UNK
     Route: 048
     Dates: start: 20120130, end: 20120227
  2. ATORVASTATIN [Concomitant]
     Dosage: UNK
  3. LOVENOX [Concomitant]
     Dosage: UNK
  4. HEPARIN [Concomitant]
  5. NEXIUM [Suspect]
     Dosage: 1 DF, 1X/DAY
     Route: 048
     Dates: start: 20120220, end: 20120227
  6. CARTEOLOL HYDROCHLORIDE [Concomitant]
     Dosage: UNK
  7. ASPIRIN [Concomitant]
     Dosage: UNK
  8. KAYEXALATE [Concomitant]

REACTIONS (2)
  - DRUG RASH WITH EOSINOPHILIA AND SYSTEMIC SYMPTOMS [None]
  - EOSINOPHILIA [None]
